FAERS Safety Report 7736771-6 (Version None)
Quarter: 2011Q3

REPORT INFORMATION
  Report Type: 
  Country: None (occurrence: None)
  Receive Date: 20110908
  Receipt Date: 20110905
  Transmission Date: 20111222
  Serious: Yes (Life-Threatening, Hospitalization)
  Sender: FDA-Public Use
  Company Number: PHHY2011FR75737

PATIENT
  Sex: Male

DRUGS (10)
  1. STALEVO 100 [Suspect]
     Indication: PARKINSON'S DISEASE
     Dosage: 200MG/125MG/31.5MG
     Dates: start: 20110801, end: 20110802
  2. ROCEPHIN [Concomitant]
     Indication: RESPIRATORY TRACT CONGESTION
     Dosage: 1 DF, QD
     Dates: start: 20110730
  3. SOLU-MEDROL [Concomitant]
     Dosage: 60 MG, DAILY
  4. ATROVENT [Concomitant]
     Indication: RESPIRATORY TRACT CONGESTION
     Dosage: UNK UKN, TID
     Dates: start: 20110730
  5. STALEVO 100 [Suspect]
     Dosage: 200MG/125MG/31.5MG 4 DF
     Dates: start: 20110803, end: 20110803
  6. STALEVO 100 [Suspect]
     Dosage: 200MG/125MG/31.5MG 5 DF
     Dates: start: 20110804
  7. STALEVO 100 [Suspect]
     Dosage: 200MG/100MG/25MG 5 TIMES DAILY, QID
     Dates: start: 20110809
  8. LOVENOX [Suspect]
     Dosage: 4000 IU, UNK
     Dates: end: 20110806
  9. LOVENOX [Suspect]
     Dosage: 4000 IU, QD
     Dates: start: 20110819
  10. BRICANYL [Concomitant]
     Indication: RESPIRATORY TRACT CONGESTION
     Dosage: UNK UKN, TID
     Dates: start: 20110730

REACTIONS (24)
  - URINARY RETENTION [None]
  - HAEMORRHOIDS [None]
  - TERMINAL STATE [None]
  - LEFT VENTRICULAR HYPERTROPHY [None]
  - C-REACTIVE PROTEIN INCREASED [None]
  - RENAL FAILURE ACUTE [None]
  - HYPERKALAEMIA [None]
  - HYPERNATRAEMIA [None]
  - NODAL ARRHYTHMIA [None]
  - CONFUSIONAL STATE [None]
  - ORAL FUNGAL INFECTION [None]
  - PROTEIN TOTAL DECREASED [None]
  - GENERAL PHYSICAL HEALTH DETERIORATION [None]
  - OLIGURIA [None]
  - HYPOVOLAEMIA [None]
  - BLOOD PRESSURE SYSTOLIC INCREASED [None]
  - BLOOD UREA INCREASED [None]
  - POLYURIA [None]
  - DIVERTICULUM INTESTINAL [None]
  - NORMOCHROMIC NORMOCYTIC ANAEMIA [None]
  - RECTAL HAEMORRHAGE [None]
  - DISTURBANCE IN ATTENTION [None]
  - BLOOD CREATININE INCREASED [None]
  - MALNUTRITION [None]
